FAERS Safety Report 6226276-6 (Version None)
Quarter: 2009Q2

REPORT INFORMATION
  Report Type: 
  Country: None (occurrence: None)
  Receive Date: 20090612
  Receipt Date: 20090508
  Transmission Date: 20091009
  Serious: No
  Sender: FDA-Public Use
  Company Number: US-ABBOTT-09P-163-0572790-00

PATIENT
  Sex: Female
  Weight: 77.18 kg

DRUGS (4)
  1. HUMIRA [Suspect]
     Indication: RHEUMATOID ARTHRITIS
     Route: 058
     Dates: start: 20090401
  2. HUMIRA [Suspect]
     Dates: start: 20060101, end: 20090401
  3. NEURONTIN [Concomitant]
     Indication: FIBROMYALGIA
     Dosage: UNKNOWN
  4. MELOXICAM [Concomitant]
     Indication: ARTHRALGIA
     Dosage: UNKNOWN

REACTIONS (1)
  - INJECTION SITE PAIN [None]
